FAERS Safety Report 21623598 (Version 1)
Quarter: 2022Q4

REPORT INFORMATION
  Report Type: Spontaneous
  Country: DE (occurrence: DE)
  Receive Date: 20221121
  Receipt Date: 20221121
  Transmission Date: 20230113
  Serious: Yes (Hospitalization)
  Sender: FDA-Public Use
  Company Number: DE-ADRED-08514-01

PATIENT
  Age: 80 Year
  Sex: Female

DRUGS (2)
  1. CANDESARTAN [Suspect]
     Active Substance: CANDESARTAN
     Indication: Product used for unknown indication
     Dosage: 16 MILLIGRAM, 16 MG, 1-0-0-0, TABLET
     Route: 048
  2. ASPIRIN [Concomitant]
     Active Substance: ASPIRIN
     Dosage: 100 MILLIGRAM, 100 MG, 1-0-0-0, TABLET
     Route: 048

REACTIONS (6)
  - Dyspnoea [Unknown]
  - Chest pain [Unknown]
  - Syncope [Unknown]
  - Atrial fibrillation [Unknown]
  - Tachycardia [Unknown]
  - Dizziness [Unknown]
